FAERS Safety Report 5218897-4 (Version None)
Quarter: 2007Q1

REPORT INFORMATION
  Report Type: 
  Country: None (occurrence: None)
  Receive Date: 20070125
  Receipt Date: 20070122
  Transmission Date: 20070707
  Serious: Yes (Death, Hospitalization)
  Sender: FDA-Public Use
  Company Number: US-BRISTOL-MYERS SQUIBB COMPANY-13652904

PATIENT
  Age: 5 Year
  Sex: Male

DRUGS (4)
  1. CEFPROZIL [Suspect]
     Indication: PYREXIA
  2. CEFPROZIL [Suspect]
     Indication: COUGH
  3. CEFPROZIL [Suspect]
     Indication: VOMITING
  4. CEFPROZIL [Suspect]
     Indication: ABDOMINAL PAIN

REACTIONS (1)
  - MYOCARDITIS [None]
